FAERS Safety Report 24300515 (Version 1)
Quarter: 2024Q3

REPORT INFORMATION
  Report Type: Report from Study
  Country: JP (occurrence: JP)
  Receive Date: 20240910
  Receipt Date: 20240910
  Transmission Date: 20241017
  Serious: Yes (Hospitalization)
  Sender: ABBVIE
  Company Number: JP-ABBVIE-5906538

PATIENT
  Age: 77 Year
  Sex: Female

DRUGS (2)
  1. CARBIDOPA\LEVODOPA [Suspect]
     Active Substance: CARBIDOPA\LEVODOPA
     Indication: Parkinson^s disease
     Dosage: START DATE TEXT: AROUND 2020
     Route: 050
  2. CARBIDOPA\LEVODOPA [Suspect]
     Active Substance: CARBIDOPA\LEVODOPA
     Route: 050

REACTIONS (11)
  - Mobility decreased [Recovering/Resolving]
  - Therapeutic product effect decreased [Unknown]
  - Hyperhidrosis [Unknown]
  - Dysstasia [Unknown]
  - Stoma site pain [Unknown]
  - Fall [Recovered/Resolved]
  - Fall [Recovering/Resolving]
  - Dyskinesia [Unknown]
  - Injury [Unknown]
  - Therapy cessation [Unknown]
  - Injury [Recovering/Resolving]

NARRATIVE: CASE EVENT DATE: 20240101
